FAERS Safety Report 6469667-0 (Version None)
Quarter: 2009Q4

REPORT INFORMATION
  Report Type: 
  Country: None (occurrence: None)
  Receive Date: 20091203
  Receipt Date: 20071008
  Transmission Date: 20100525
  Serious: Yes (Hospitalization)
  Sender: FDA-Public Use
  Company Number: DE-ELI_LILLY_AND_COMPANY-DE200710002172

PATIENT
  Sex: Female

DRUGS (3)
  1. STRATTERA [Suspect]
     Indication: ATTENTION DEFICIT/HYPERACTIVITY DISORDER
     Dosage: UNK, UNKNOWN
     Route: 048
  2. LEVOTHYROXINE SODIUM [Concomitant]
     Dosage: 125 MG, DAILY (1/D)
     Route: 065
  3. FERRO SANOL [Concomitant]
     Dosage: ONCE DAILY EVERY THREE TO FOUR DAYS
     Route: 065

REACTIONS (1)
  - SUICIDAL IDEATION [None]
